FAERS Safety Report 19052153 (Version 1)
Quarter: 2021Q1

REPORT INFORMATION
  Report Type: Spontaneous
  Country: CA (occurrence: CA)
  Receive Date: 20210324
  Receipt Date: 20210324
  Transmission Date: 20210420
  Serious: Yes (Other)
  Sender: FDA-Public Use
  Company Number: CA-JNJFOC-20210334550

PATIENT
  Age: 53 Year
  Sex: Female

DRUGS (3)
  1. HYDROCORTISONE. [Concomitant]
     Active Substance: HYDROCORTISONE
     Indication: PREMEDICATION
     Route: 042
  2. REMICADE [Suspect]
     Active Substance: INFLIXIMAB
     Indication: CROHN^S DISEASE
     Route: 042
  3. ACETAMINOPHEN. [Concomitant]
     Active Substance: ACETAMINOPHEN
     Indication: PREMEDICATION
     Route: 048

REACTIONS (12)
  - Intentional product use issue [Recovered/Resolved]
  - Pyelonephritis [Recovered/Resolved]
  - Urine abnormality [Recovered/Resolved]
  - Fistula discharge [Recovered/Resolved]
  - Cystitis [Recovered/Resolved]
  - Pollakiuria [Recovered/Resolved]
  - Pain [Recovered/Resolved]
  - Incorrect dose administered [Recovered/Resolved]
  - Weight increased [Recovered/Resolved]
  - Haemorrhage [Recovered/Resolved]
  - Off label use [Recovered/Resolved]
  - Feeding disorder [Recovered/Resolved]
